FAERS Safety Report 24452177 (Version 1)
Quarter: 2024Q4

REPORT INFORMATION
  Report Type: Spontaneous
  Country: US (occurrence: US)
  Receive Date: 20241017
  Receipt Date: 20241017
  Transmission Date: 20250115
  Serious: No
  Sender: SUNOVION
  Company Number: US-SMPA-202401-URV-000066AA

PATIENT
  Age: 69 Year
  Sex: Female

DRUGS (2)
  1. GEMTESA [Suspect]
     Active Substance: VIBEGRON
     Indication: Product used for unknown indication
     Dosage: UNK
     Route: 065
     Dates: start: 202311
  2. SOLIFENACIN [Concomitant]
     Active Substance: SOLIFENACIN
     Indication: Hypertonic bladder
     Dosage: UNK
     Route: 065
     Dates: start: 202310

REACTIONS (5)
  - Adverse event [Unknown]
  - Alopecia [Recovered/Resolved]
  - Hypertension [Unknown]
  - Headache [Recovered/Resolved]
  - Nasal congestion [Recovered/Resolved]
